FAERS Safety Report 6635871-1 (Version None)
Quarter: 2010Q1

REPORT INFORMATION
  Report Type: 
  Country: None (occurrence: None)
  Receive Date: 20100311
  Receipt Date: 20100301
  Transmission Date: 20100710
  Serious: Yes (Other)
  Sender: FDA-Public Use
  Company Number: 524895

PATIENT
  Age: 10 Year
  Sex: Male

DRUGS (7)
  1. BLEOMYCIN SULFATE [Suspect]
     Indication: HODGKIN'S DISEASE
  2. DACARBAZINE [Suspect]
     Indication: HODGKIN'S DISEASE
  3. ETOPOSIDE [Suspect]
     Indication: HODGKIN'S DISEASE
  4. VINCRISTINE SULFATE [Suspect]
     Indication: HODGKIN'S DISEASE
  5. VINBLASTINE [Suspect]
     Indication: HODGKIN'S DISEASE
  6. DOXORUBICIN HCL [Suspect]
     Indication: HODGKIN'S DISEASE
  7. NITROGEN MUSTARD [Suspect]
     Indication: HODGKIN'S DISEASE

REACTIONS (4)
  - MALIGNANT NEOPLASM PROGRESSION [None]
  - RESPIRATORY FAILURE [None]
  - STEM CELL TRANSPLANT [None]
  - TREATMENT RELATED SECONDARY MALIGNANCY [None]
